FAERS Safety Report 7222643-2 (Version None)
Quarter: 2011Q1

REPORT INFORMATION
  Report Type: 
  Country: None (occurrence: None)
  Receive Date: 20110112
  Receipt Date: 20110103
  Transmission Date: 20110831
  Serious: Yes (Death)
  Sender: FDA-Public Use
  Company Number: AU-BAXTER-2011BH000308

PATIENT
  Sex: Male

DRUGS (3)
  1. DIANEAL LOW CALCIUM WITH DEXTROSE 4.25% AND CALCIUM 2.5MEQ/L [Suspect]
     Indication: PERITONEAL DIALYSIS
     Route: 033
  2. EXTRANEAL [Suspect]
     Indication: PERITONEAL DIALYSIS
     Route: 033
  3. NUTRINEAL [Suspect]
     Indication: PERITONEAL DIALYSIS
     Route: 033

REACTIONS (1)
  - DEATH [None]
